FAERS Safety Report 6459148-2 (Version None)
Quarter: 2009Q4

REPORT INFORMATION
  Report Type: 
  Country: None (occurrence: None)
  Receive Date: 20091125
  Receipt Date: 20091125
  Transmission Date: 20100525
  Serious: Yes (Hospitalization, Other)
  Sender: FDA-Public Use
  Company Number: None

PATIENT
  Age: 12 Year
  Sex: Male
  Weight: 56 kg

DRUGS (1)
  1. ALBUMARC 25% [Suspect]
     Indication: HYPOALBUMINAEMIA
     Dosage: 60 GRAMS ONCE DAILY X2 DAYS IV BOLUS
     Route: 040
     Dates: start: 20091122, end: 20091123

REACTIONS (3)
  - ERYTHEMA [None]
  - FLUSHING [None]
  - INFUSION RELATED REACTION [None]
